FAERS Safety Report 8591090 (Version 2)
Quarter: 2012Q4

REPORT INFORMATION
  Report Type: 
  Country: FR (occurrence: FR)
  Receive Date: 20120601
  Receipt Date: 20121203
  Transmission Date: 20130627
  Serious: Yes (Death, Hospitalization)
  Sender: FDA-Public Use
  Company Number: FR-ELI_LILLY_AND_COMPANY-FR201205007263

PATIENT
  Age: 72 Year
  Sex: Male

DRUGS (5)
  1. ALIMTA [Suspect]
     Indication: LUNG ADENOCARCINOMA
     Dosage: 1000 mg, UNK
     Route: 042
     Dates: start: 20120221
  2. ALIMTA [Suspect]
     Dosage: 800 mg, UNK
     Route: 042
     Dates: start: 20120313
  3. CISPLATINE [Concomitant]
     Indication: LUNG ADENOCARCINOMA
     Dosage: 150 mg, UNK
     Dates: start: 20120221
  4. CISPLATINE [Concomitant]
     Dosage: 154 mg, UNK
     Dates: start: 20120313
  5. NEULASTA [Concomitant]
     Dosage: UNK
     Dates: start: 20120314, end: 20120314

REACTIONS (6)
  - Malignant neoplasm progression [Fatal]
  - Nephrotic syndrome [Recovering/Resolving]
  - Sepsis [Recovering/Resolving]
  - Dehydration [Recovering/Resolving]
  - Colitis [Recovering/Resolving]
  - Pancytopenia [Recovering/Resolving]
